FAERS Safety Report 6958237-3 (Version None)
Quarter: 2010Q3

REPORT INFORMATION
  Report Type: 
  Country: None (occurrence: None)
  Receive Date: 20100831
  Receipt Date: 20100823
  Transmission Date: 20110219
  Serious: Yes (Other)
  Sender: FDA-Public Use
  Company Number: CA-JNJFOC-20100400445

PATIENT
  Sex: Female
  Weight: 64.5 kg

DRUGS (6)
  1. REMICADE [Suspect]
     Indication: COLITIS ULCERATIVE
     Route: 042
  2. REMICADE [Suspect]
     Route: 042
  3. MESALAMINE [Concomitant]
  4. ZOPICLONE [Concomitant]
  5. ASPIRIN [Concomitant]
  6. ATACAND [Concomitant]

REACTIONS (1)
  - HYPERPARATHYROIDISM [None]
